FAERS Safety Report 19471414 (Version 1)
Quarter: 2021Q2

REPORT INFORMATION
  Report Type: Spontaneous
  Country: US (occurrence: US)
  Receive Date: 20210628
  Receipt Date: 20210628
  Transmission Date: 20210717
  Serious: No
  Sender: FDA-Public Use
  Company Number: US-TEVA-2021-US-1927725

PATIENT
  Age: 46 Year
  Sex: Male
  Weight: 71.21 kg

DRUGS (4)
  1. SYMBICORT [Concomitant]
     Active Substance: BUDESONIDE\FORMOTEROL FUMARATE DIHYDRATE
     Dosage: TWICE DAILY
     Route: 065
  2. ALBUTEOL SUFATE HFA [Suspect]
     Active Substance: ALBUTEROL SULFATE
     Indication: ASTHMA
     Dosage: 2 PUFFS 3 TIMES DAILY
     Route: 055
     Dates: start: 20210622
  3. LEVOTHYROXINE. [Concomitant]
     Active Substance: LEVOTHYROXINE
     Route: 065
  4. FLAIREX [Concomitant]
     Dosage: TWICE DAILY
     Route: 065

REACTIONS (3)
  - Incorrect dose administered [Unknown]
  - Extra dose administered [Unknown]
  - Therapeutic product effect incomplete [Unknown]

NARRATIVE: CASE EVENT DATE: 202106
